FAERS Safety Report 20410271 (Version 1)
Quarter: 2022Q1

REPORT INFORMATION
  Report Type: Spontaneous
  Country: US (occurrence: None)
  Receive Date: 20220131
  Receipt Date: 20220131
  Transmission Date: 20220424
  Serious: Yes (Hospitalization)
  Sender: FDA-Public Use
  Company Number: None

PATIENT
  Age: 74 Year
  Sex: Male
  Weight: 83.46 kg

DRUGS (1)
  1. APIXABAN [Suspect]
     Active Substance: APIXABAN
     Indication: Pulmonary embolism
     Dosage: FREQUENCY : TWICE A DAY;?
     Route: 048
     Dates: start: 20211122, end: 20211223

REACTIONS (6)
  - Duodenal ulcer [None]
  - Upper gastrointestinal haemorrhage [None]
  - Gastritis [None]
  - Wound secretion [None]
  - Oesophagogastroduodenoscopy abnormal [None]
  - Ulcer [None]

NARRATIVE: CASE EVENT DATE: 20211223
